FAERS Safety Report 5703842-5 (Version None)
Quarter: 2008Q2

REPORT INFORMATION
  Report Type: 
  Country: None (occurrence: None)
  Receive Date: 20080408
  Receipt Date: 20080325
  Transmission Date: 20081010
  Serious: Yes (Other)
  Sender: FDA-Public Use
  Company Number: US023134

PATIENT
  Age: 60 Year
  Sex: Male

DRUGS (2)
  1. MODAFINIL [Suspect]
     Indication: SLEEP APNOEA SYNDROME
     Dosage: 200 MG QD ORAL
     Route: 048
     Dates: start: 20071107
  2. ALOSITOL [Concomitant]

REACTIONS (1)
  - CATARACT [None]
